FAERS Safety Report 6582770-X (Version None)
Quarter: 2010Q1

REPORT INFORMATION
  Report Type: 
  Country: None (occurrence: None)
  Receive Date: 20100216
  Receipt Date: 20100205
  Transmission Date: 20100710
  Serious: Yes (Hospitalization, Other)
  Sender: FDA-Public Use
  Company Number: FR-PFIZER INC-2010016133

PATIENT
  Age: 39 Year
  Sex: Male

DRUGS (13)
  1. FARMORUBICINE [Suspect]
     Indication: GASTRIC CANCER
     Dosage: UNK
     Route: 042
     Dates: start: 20091027, end: 20091027
  2. FARMORUBICINE [Suspect]
     Dosage: UNK
     Route: 042
     Dates: start: 20091117, end: 20091117
  3. FARMORUBICINE [Suspect]
     Dosage: UNK
     Route: 042
     Dates: start: 20091208
  4. XELODA [Concomitant]
     Dosage: 2 DF PER DAY
     Route: 048
     Dates: start: 20091209
  5. ELOXATIN [Concomitant]
     Indication: GASTRIC CANCER
     Dosage: UNK
     Dates: start: 20091027, end: 20091027
  6. ELOXATIN [Concomitant]
     Dosage: UNK
     Dates: start: 20091117, end: 20091117
  7. 5-FU [Concomitant]
     Indication: GASTRIC CANCER
     Dosage: UNK
     Dates: start: 20091027, end: 20091027
  8. 5-FU [Concomitant]
     Dosage: UNK
     Dates: start: 20091117, end: 20091117
  9. ZOPHREN [Concomitant]
     Dosage: UNK
     Dates: start: 20091027, end: 20091027
  10. ZOPHREN [Concomitant]
     Dosage: UNK
     Dates: start: 20091117, end: 20091117
  11. ZOPHREN [Concomitant]
     Dosage: UNK
     Dates: start: 20091208
  12. EMEND [Concomitant]
     Dosage: UNK
     Dates: start: 20091208, end: 20091211
  13. MYOLASTAN [Concomitant]
     Dosage: UNK
     Dates: start: 20091210, end: 20091211

REACTIONS (2)
  - ANGIOEDEMA [None]
  - URTICARIA [None]
